FAERS Safety Report 7657358-X (Version None)
Quarter: 2011Q3

REPORT INFORMATION
  Report Type: 
  Country: None (occurrence: None)
  Receive Date: 20110804
  Receipt Date: 20110801
  Transmission Date: 20111222
  Serious: Yes (Death)
  Sender: FDA-Public Use
  Company Number: PHHY2011CL66657

PATIENT
  Sex: Male

DRUGS (1)
  1. GLEEVEC [Suspect]
     Dosage: UNK UKN, UNK
     Dates: start: 20100101

REACTIONS (2)
  - HEPATIC FAILURE [None]
  - CIRRHOSIS ALCOHOLIC [None]
